FAERS Safety Report 22588688 (Version 1)
Quarter: 2023Q2

REPORT INFORMATION
  Report Type: Spontaneous
  Country: FR (occurrence: None)
  Receive Date: 20230612
  Receipt Date: 20230612
  Transmission Date: 20230721
  Serious: Yes (Life-Threatening)
  Sender: FDA-Public Use
  Company Number: 2023A132649

PATIENT
  Age: 83 Year
  Sex: Female

DRUGS (4)
  1. DAPAGLIFLOZIN [Interacting]
     Active Substance: DAPAGLIFLOZIN
     Indication: Insulin-requiring type 2 diabetes mellitus
     Route: 048
     Dates: start: 20230415, end: 20230421
  2. NOVORAPID [Interacting]
     Active Substance: INSULIN ASPART
     Indication: Insulin-requiring type 2 diabetes mellitus
     Dosage: CATCH-UP (5 TO 8 IU/INJECTION)
     Route: 058
  3. BACTRIM [Interacting]
     Active Substance: SULFAMETHOXAZOLE\TRIMETHOPRIM
     Indication: Pyelonephritis acute
     Route: 048
     Dates: start: 20230413, end: 20230421
  4. INSULIN GLARGINE [Interacting]
     Active Substance: INSULIN GLARGINE
     Indication: Insulin-requiring type 2 diabetes mellitus
     Dosage: 10 IU
     Route: 058

REACTIONS (1)
  - Hypoglycaemia [Recovered/Resolved]

NARRATIVE: CASE EVENT DATE: 20230419
